FAERS Safety Report 6613129-4 (Version None)
Quarter: 2010Q1

REPORT INFORMATION
  Report Type: 
  Country: None (occurrence: None)
  Receive Date: 20100225
  Receipt Date: 20100209
  Transmission Date: 20100710
  Serious: Yes (Hospitalization)
  Sender: FDA-Public Use
  Company Number: CTI_01117_2010

PATIENT
  Sex: Male

DRUGS (4)
  1. FACTIVE [Suspect]
     Indication: SINUSITIS
     Dosage: DF
     Dates: start: 20091201
  2. OTHER ANTIFLAMMATORY AGENTS IN COMB. [Concomitant]
  3. ZITHROMAX [Concomitant]
  4. AVELOX [Concomitant]

REACTIONS (6)
  - ANGINA PECTORIS [None]
  - DIAPHRAGMALGIA [None]
  - HEPATIC ENZYME INCREASED [None]
  - MYALGIA [None]
  - NO THERAPEUTIC RESPONSE [None]
  - RASH [None]
